FAERS Safety Report 8172758-X (Version None)
Quarter: 2012Q1

REPORT INFORMATION
  Report Type: 
  Country: None (occurrence: None)
  Receive Date: 20120229
  Receipt Date: 20111117
  Transmission Date: 20120608
  Serious: Yes (Other)
  Sender: FDA-Public Use
  Company Number: CA-JNJFOC-20120110111

PATIENT
  Sex: Male
  Weight: 84 kg

DRUGS (3)
  1. REMICADE [Suspect]
     Indication: CROHN'S DISEASE
     Route: 042
     Dates: start: 20090417
  2. URSODIOL [Concomitant]
     Route: 048
  3. MESALAMINE [Concomitant]
     Route: 048

REACTIONS (1)
  - LIVER DISORDER [None]
